FAERS Safety Report 8491912-0 (Version None)
Quarter: 2012Q3

REPORT INFORMATION
  Report Type: 
  Country: None (occurrence: None)
  Receive Date: 20120706
  Receipt Date: 20120110
  Transmission Date: 20120928
  Serious: No
  Sender: FDA-Public Use
  Company Number: US-GLAXOSMITHKLINE-A0960790A

PATIENT
  Age: 68 Year
  Sex: Female

DRUGS (4)
  1. ADVAIR DISKUS 100/50 [Suspect]
     Route: 055
  2. ALBUTEROL [Concomitant]
  3. FLOVENT [Suspect]
     Indication: ASTHMA
     Dosage: 1PUFF PER DAY
     Route: 055
     Dates: start: 20100101
  4. ADVAIR DISKUS 100/50 [Suspect]
     Route: 055

REACTIONS (4)
  - CHEST DISCOMFORT [None]
  - DYSPEPSIA [None]
  - DRUG INEFFECTIVE [None]
  - PRODUCT QUALITY ISSUE [None]
